FAERS Safety Report 5642409-4 (Version None)
Quarter: 2008Q1

REPORT INFORMATION
  Report Type: 
  Country: None (occurrence: None)
  Receive Date: 20080227
  Receipt Date: 20080227
  Transmission Date: 20080703
  Serious: Yes (Other)
  Sender: FDA-Public Use
  Company Number: None

PATIENT
  Age: 59 Year
  Sex: Female

DRUGS (6)
  1. FOSAMAX [Suspect]
     Indication: OSTEOPOROSIS
     Dosage: WEEKLY
     Dates: start: 19990101, end: 20050401
  2. ESTRODIOL [Concomitant]
  3. ARANESP [Concomitant]
  4. PROVERA [Concomitant]
  5. BEXTRA [Concomitant]
  6. NEXIUM [Concomitant]

REACTIONS (4)
  - OSTEOMYELITIS [None]
  - OSTEONECROSIS [None]
  - TOOTH EXTRACTION [None]
  - WOUND SECRETION [None]
